FAERS Safety Report 20637564 (Version 1)
Quarter: 2022Q1

REPORT INFORMATION
  Report Type: Report from Study
  Country: IN (occurrence: IN)
  Receive Date: 20220325
  Receipt Date: 20220325
  Transmission Date: 20220424
  Serious: Yes (Hospitalization, Other)
  Sender: FDA-Public Use
  Company Number: IN-NOVARTISPH-PHHY2019IN192820

PATIENT
  Age: 15 Year
  Sex: Female

DRUGS (11)
  1. SIMULECT [Suspect]
     Active Substance: BASILIXIMAB
     Indication: Renal transplant
     Dosage: 20 MG ON DAY 0 AND DAY 4
     Route: 065
     Dates: start: 20190618
  2. SIMULECT [Suspect]
     Active Substance: BASILIXIMAB
     Indication: Immunosuppression
  3. METHYLPREDNISOLONE [Concomitant]
     Active Substance: METHYLPREDNISOLONE
     Indication: Immunosuppression
     Dosage: UNK
     Route: 065
  4. MYCOPHENOLATE MOFETIL [Concomitant]
     Active Substance: MYCOPHENOLATE MOFETIL
     Indication: Immunosuppression
     Dosage: UNK
     Route: 065
  5. TACROLIMUS [Concomitant]
     Active Substance: TACROLIMUS
     Indication: Immunosuppression
     Dosage: UNK
     Route: 065
  6. XIKA RAPID [Concomitant]
     Indication: Product used for unknown indication
     Dosage: UNK, PRN (SOS)
     Route: 065
  7. KESOL [Concomitant]
     Indication: Product used for unknown indication
     Dosage: 2.5 ML, BID
     Route: 065
  8. DUPHALAC [Concomitant]
     Active Substance: LACTULOSE
     Indication: Product used for unknown indication
     Dosage: 2.5 ML, QD (AT NIGHT)
     Route: 065
  9. BETADINE [Concomitant]
     Active Substance: POVIDONE-IODINE
     Indication: Product used for unknown indication
     Dosage: UNK, BID
     Route: 065
  10. CANDID [Concomitant]
     Indication: Product used for unknown indication
     Dosage: UNK
     Route: 065
  11. METROGYL DG [Concomitant]
     Indication: Product used for unknown indication
     Dosage: UNK (LOCAL APPLICATION FOR TEETH BRUSHING)
     Route: 065

REACTIONS (12)
  - Kidney transplant rejection [Recovering/Resolving]
  - Heart rate increased [Unknown]
  - Blood creatinine increased [Unknown]
  - Haemoglobin decreased [Unknown]
  - Blood glucose decreased [Unknown]
  - Complications of transplanted kidney [Unknown]
  - Renal artery stenosis [Unknown]
  - Nausea [Unknown]
  - Dyspnoea [Unknown]
  - Pyrexia [Unknown]
  - Hypertension [Unknown]
  - Renal disorder [Unknown]

NARRATIVE: CASE EVENT DATE: 20190731
